FAERS Safety Report 9523468 (Version 1)
Quarter: 2013Q3

REPORT INFORMATION
  Report Type: Spontaneous
  Country: AU (occurrence: AU)
  Receive Date: 20130913
  Receipt Date: 20130913
  Transmission Date: 20140515
  Serious: Yes (Death, Other)
  Sender: FDA-Public Use
  Company Number: PHHY2013AU101480

PATIENT
  Age: 67 Year
  Sex: Female

DRUGS (9)
  1. DEXAMETHASONE [Suspect]
  2. BORTEZOMIB [Suspect]
     Indication: PLASMA CELL MYELOMA
     Dosage: 1.3 MG/M2, UNK
  3. PREDNISOLONE [Suspect]
     Indication: PLASMA CELL MYELOMA
  4. DOXORUBICIN [Suspect]
     Indication: PLASMA CELL MYELOMA
     Dosage: 20 MG ON DAY1, 2, 4, 5, 8, 9, 11, AND 12 FOR FOUR 21-DAY TREATMENT CYCLES
  5. CYCLOPHOSPHAMIDE [Suspect]
     Indication: PLASMA CELL MYELOMA
     Dosage: 3000 MG/M2, (3 G/M2 )
  6. G-CSF [Suspect]
     Indication: PLASMA CELL MYELOMA
  7. MELPHALAN [Concomitant]
     Indication: PLASMA CELL MYELOMA
     Dosage: 200 MG/M2, UNK
  8. MELPHALAN [Concomitant]
     Dosage: 140 MG/M2, UNK
  9. THALIDOMIDE [Concomitant]
     Indication: PLASMA CELL MYELOMA

REACTIONS (6)
  - Plasma cell myeloma [Fatal]
  - Cytomegalovirus chorioretinitis [Unknown]
  - Visual acuity reduced [Unknown]
  - Neuropathy peripheral [Unknown]
  - Febrile neutropenia [Recovered/Resolved]
  - Vitreous floaters [Unknown]
